FAERS Safety Report 24703162 (Version 6)
Quarter: 2025Q1

REPORT INFORMATION
  Report Type: Spontaneous
  Country: US (occurrence: US)
  Receive Date: 20241205
  Receipt Date: 20250225
  Transmission Date: 20250409
  Serious: No
  Sender: PFIZER
  Company Number: US-PFIZER INC-202400310189

PATIENT
  Age: 68 Year
  Sex: Female
  Weight: 102.06 kg

DRUGS (1)
  1. GENOTROPIN [Suspect]
     Active Substance: SOMATROPIN
     Indication: Growth hormone deficiency
     Dosage: DOES 1 ONE DAY AND 1.2 THE NEXT DAY AND THAT EVENS OUT TO 1.1
     Route: 058
     Dates: start: 2020

REACTIONS (5)
  - Device use issue [Unknown]
  - Device delivery system issue [Recovered/Resolved]
  - Device mechanical issue [Recovered/Resolved]
  - Device information output issue [Recovered/Resolved]
  - Device power source issue [Recovered/Resolved]
